FAERS Safety Report 11560478 (Version 2)
Quarter: 2015Q4

REPORT INFORMATION
  Report Type: Spontaneous
  Country: IL (occurrence: IL)
  Receive Date: 20150928
  Receipt Date: 20151023
  Transmission Date: 20160304
  Serious: Yes (Death, Hospitalization, Other)
  Sender: FDA-Public Use
  Company Number: IL-JNJFOC-20150917345

PATIENT
  Sex: Male

DRUGS (1)
  1. SIMPONI [Suspect]
     Active Substance: GOLIMUMAB
     Indication: ANKYLOSING SPONDYLITIS
     Route: 058
     Dates: start: 20130124

REACTIONS (4)
  - Asthenia [Unknown]
  - Leukaemia [Fatal]
  - Urinary tract disorder [Not Recovered/Not Resolved]
  - Fatigue [Unknown]
